FAERS Safety Report 10362270 (Version 1)
Quarter: 2014Q1

REPORT INFORMATION
  Report Type: Spontaneous
  Country: US (occurrence: None)
  Receive Date: 20140306
  Receipt Date: 20140306
  Transmission Date: 20141002
  Serious: Yes (Hospitalization)
  Sender: FDA-Public Use
  Company Number: 163-21880-13060818

PATIENT
  Age: 62 Year
  Sex: Male
  Weight: 76.2 kg

DRUGS (16)
  1. REVLIMID (LENALIDOMIDE) (25 MILLIGRAM, CAPSULES) [Suspect]
     Indication: PLASMA CELL MYELOMA
     Dosage: 25 MG, 21 IN 28 D
     Route: 048
     Dates: start: 200806
  2. MULTIVITAMINS (MULTIVITAMINS)(TABLETS) [Concomitant]
  3. OXYCONTIN(OXYCODONE HYDROCHLORIDE)(TABLETS) [Concomitant]
  4. STOOL SOFTENER(DOCUSATE SODIUM) (TABLETS) [Concomitant]
  5. ANDROGEL(TESTOSTERONE)(GEL) [Concomitant]
  6. CALCITROL(CALCITROL)(CAPSULES) [Concomitant]
  7. DEXAMETHASONE(DEXAMETHASONE)(TABLETS) [Concomitant]
  8. LORAZEPAM(LORAZEPAM)(TABLETS)? [Concomitant]
  9. FENTANYL(FENTANYL)(POULTICE OR PATCH) [Concomitant]
  10. ASPIRINE(ACETYLSALICYLIC ACID)(ENTERIC-COATED TABLET) [Concomitant]
  11. OXYCODONE HCL(OXYCODONE HYDROCHLORIDE)(TABLETS) [Concomitant]
  12. LEVOFLOXACIN(LEVOFLOXACIN)(UNKNOWN) [Concomitant]
  13. DURAGESIC(FENTANYL)(POULTICE OR PATCH) [Concomitant]
  14. OMEGA 3(FISH OIL) (UNKNOWN) [Concomitant]
  15. NEUTRA PHOS(POTASSIUM PHOSPHATE MONOBASIC)(UNKNOWN) [Concomitant]
  16. CALICUM + VIT D(CALCIUM + VIT D)(UNKNOWN) [Concomitant]

REACTIONS (3)
  - Pneumonia [None]
  - Subclavian vein thrombosis [None]
  - Axillary vein thrombosis [None]
